FAERS Safety Report 5521919-4 (Version None)
Quarter: 2007Q4

REPORT INFORMATION
  Report Type: 
  Country: None (occurrence: None)
  Receive Date: 20071120
  Receipt Date: 20061030
  Transmission Date: 20080405
  Serious: No
  Sender: FDA-Public Use
  Company Number: US-BRISTOL-MYERS SQUIBB COMPANY-13559455

PATIENT
  Age: 35 Year
  Sex: Male
  Weight: 93 kg

DRUGS (2)
  1. AVALIDE [Suspect]
     Indication: HYPERTENSION
     Dosage: 150MG/12.5MG INCREASED TO 300MG/12.5MG
     Route: 048
  2. ALBUTEROL [Concomitant]

REACTIONS (2)
  - DRUG ADMINISTRATION ERROR [None]
  - HEADACHE [None]
